FAERS Safety Report 11593270 (Version 2)
Quarter: 2016Q2

REPORT INFORMATION
  Report Type: Spontaneous
  Country: IT (occurrence: IT)
  Receive Date: 20151005
  Receipt Date: 20160523
  Transmission Date: 20160815
  Serious: Yes (Hospitalization)
  Sender: FDA-Public Use
  Company Number: IT-TEVA-597223ACC

PATIENT
  Age: 10 Year
  Sex: Male
  Weight: 38 kg

DRUGS (3)
  1. ETOPOSIDE TEVA - FLACONE 5 ML 20MG/ML - TEVA PHARMA B.V. [Suspect]
     Active Substance: ETOPOSIDE
     Indication: ACUTE MYELOID LEUKAEMIA
     Dosage: 120 MG CYCLICAL
     Route: 042
     Dates: start: 20150921, end: 20150924
  2. CITARABINA HOSPIRA - HOSPIRA ITALIA S.R.L. [Concomitant]
     Indication: ACUTE MYELOID LEUKAEMIA
     Dosage: 240 MG
     Route: 042
     Dates: start: 20150921, end: 20150924
  3. ZAVEDOS - 10 MG/10 ML SOLUZIONE INIETTABILE - PFIZER ITALIA S.R.L. [Concomitant]
     Indication: ACUTE MYELOID LEUKAEMIA
     Dosage: 12 MG
     Route: 042
     Dates: start: 20150921, end: 20150923

REACTIONS (3)
  - Dyspnoea [Recovered/Resolved]
  - Oxygen saturation decreased [Recovered/Resolved]
  - Bronchospasm [Recovered/Resolved]

NARRATIVE: CASE EVENT DATE: 20150921
